FAERS Safety Report 19956576 (Version 1)
Quarter: 2021Q4

REPORT INFORMATION
  Report Type: Spontaneous
  Country: JP (occurrence: JP)
  Receive Date: 20211014
  Receipt Date: 20211014
  Transmission Date: 20220303
  Serious: Yes (Other)
  Sender: FDA-Public Use
  Company Number: JP-EAGLE PHARMACEUTICALS, INC.-JP-2021EAG000214

PATIENT
  Age: 62 Year
  Sex: Female

DRUGS (6)
  1. BENDAMUSTINE HYDROCHLORIDE [Suspect]
     Active Substance: BENDAMUSTINE HYDROCHLORIDE
     Indication: Diffuse large B-cell lymphoma recurrent
     Dosage: UNK (AT 100% DOSE; BR THERAPY)
     Route: 041
  2. BENDAMUSTINE HYDROCHLORIDE [Suspect]
     Active Substance: BENDAMUSTINE HYDROCHLORIDE
     Dosage: UNK (PBR THERAPY)
     Route: 041
  3. RITUXAN [Concomitant]
     Active Substance: RITUXIMAB
     Indication: Diffuse large B-cell lymphoma recurrent
     Dosage: UNK (BR THERAPY)
     Route: 041
  4. RITUXAN [Concomitant]
     Active Substance: RITUXIMAB
     Dosage: UNK (PBR THERAPY)
     Route: 041
  5. POLATUZUMAB VEDOTIN [Concomitant]
     Active Substance: POLATUZUMAB VEDOTIN
     Indication: Diffuse large B-cell lymphoma recurrent
     Dosage: UNK (PBR THERAPY)
     Route: 041
  6. CARBOPLATIN W/DEXAMETHASONE/GEMCITABINE/RITUX [Concomitant]
     Indication: Diffuse large B-cell lymphoma recurrent
     Dosage: UNK (GCD-R THERAPY)
     Route: 065

REACTIONS (5)
  - Posterior reversible encephalopathy syndrome [Unknown]
  - Neutrophil count decreased [Unknown]
  - Lymphocyte count decreased [Unknown]
  - Anaemia [Unknown]
  - Platelet count decreased [Unknown]
